FAERS Safety Report 11859251 (Version 1)
Quarter: 2015Q4

REPORT INFORMATION
  Report Type: Report from Study
  Country: US (occurrence: US)
  Receive Date: 20151222
  Receipt Date: 20151222
  Transmission Date: 20160305
  Serious: No
  Sender: FDA-Public Use
  Company Number: US-CELGENEUS-USA-2015066136

PATIENT

DRUGS (1)
  1. THALOMID [Suspect]
     Active Substance: THALIDOMIDE
     Indication: PRODUCT USED FOR UNKNOWN INDICATION
     Route: 048

REACTIONS (5)
  - Delirium [Recovered/Resolved]
  - Muscular weakness [Recovering/Resolving]
  - Fatigue [Recovering/Resolving]
  - Sleep disorder [Unknown]
  - Gait disturbance [Recovered/Resolved]
